FAERS Safety Report 10957150 (Version 1)
Quarter: 2015Q1

REPORT INFORMATION
  Report Type: Report from Study
  Country: BR (occurrence: BR)
  Receive Date: 20150326
  Receipt Date: 20150326
  Transmission Date: 20150721
  Serious: Yes (Other)
  Sender: FDA-Public Use
  Company Number: BR-ABBVIE-15K-020-1366289-00

PATIENT
  Sex: Female
  Weight: 63 kg

DRUGS (8)
  1. SIMVASTATIN. [Concomitant]
     Active Substance: SIMVASTATIN
     Indication: BLOOD CHOLESTEROL ABNORMAL
     Route: 048
     Dates: start: 2011
  2. HUMIRA [Suspect]
     Active Substance: ADALIMUMAB
     Indication: RHEUMATOID ARTHRITIS
     Route: 058
     Dates: start: 20100413, end: 20150113
  3. PREDNISONE. [Concomitant]
     Active Substance: PREDNISONE
     Indication: ARTHRITIS
     Route: 048
     Dates: start: 2000
  4. VITAMIN D [Concomitant]
     Active Substance: CHOLECALCIFEROL
     Indication: BONE DISORDER
     Route: 048
     Dates: start: 2012
  5. ALENDRONATE [Concomitant]
     Active Substance: ALENDRONATE SODIUM
     Indication: BONE DISORDER
     Route: 048
     Dates: start: 2011
  6. OMEPRAZOLE. [Concomitant]
     Active Substance: OMEPRAZOLE
     Indication: GASTRIC DISORDER
     Route: 048
     Dates: start: 2005
  7. NAPROXEN. [Concomitant]
     Active Substance: NAPROXEN
     Indication: ARTHRITIS
     Route: 048
     Dates: start: 2010
  8. METHOTREXATE [Concomitant]
     Active Substance: METHOTREXATE
     Indication: ARTHRITIS
     Route: 048
     Dates: start: 2006

REACTIONS (1)
  - Xanthelasma [Recovered/Resolved]

NARRATIVE: CASE EVENT DATE: 2012
